FAERS Safety Report 16253774 (Version 2)
Quarter: 2019Q2

REPORT INFORMATION
  Report Type: Spontaneous
  Country: US (occurrence: US)
  Receive Date: 20190430
  Receipt Date: 20190522
  Transmission Date: 20190711
  Serious: No
  Sender: FDA-Public Use
  Company Number: US-TEVA-2019-US-1045415

PATIENT
  Age: 53 Year
  Sex: Female
  Weight: 129 kg

DRUGS (21)
  1. SPIRIVA [Concomitant]
     Active Substance: TIOTROPIUM BROMIDE MONOHYDRATE
  2. AJOVY [Suspect]
     Active Substance: FREMANEZUMAB-VFRM
     Indication: MIGRAINE
     Route: 058
     Dates: start: 201902, end: 20190411
  3. LEXAPRO [Concomitant]
     Active Substance: ESCITALOPRAM OXALATE
  4. FLOVENT [Concomitant]
     Active Substance: FLUTICASONE PROPIONATE
  5. CLONAZEPAM. [Concomitant]
     Active Substance: CLONAZEPAM
  6. TRAZODONE [Concomitant]
     Active Substance: TRAZODONE HYDROCHLORIDE
  7. OXYCODONE [Concomitant]
     Active Substance: OXYCODONE
  8. OXYBUTYNIN. [Concomitant]
     Active Substance: OXYBUTYNIN CHLORIDE
  9. KLONOPIN [Concomitant]
     Active Substance: CLONAZEPAM
  10. COSENTYX [Concomitant]
     Active Substance: SECUKINUMAB
  11. QUETIAPINE. [Concomitant]
     Active Substance: QUETIAPINE
  12. MONTELUKAST [Concomitant]
     Active Substance: MONTELUKAST SODIUM
  13. FLONASE [Concomitant]
     Active Substance: FLUTICASONE PROPIONATE
  14. AMITRIPTYLINE [Concomitant]
     Active Substance: AMITRIPTYLINE
  15. LUCIDIMINE [Concomitant]
  16. CALCIUM SUPPLEMENT [Concomitant]
     Active Substance: CALCIUM
  17. LYRICA [Concomitant]
     Active Substance: PREGABALIN
  18. ELETRIPTAN. [Concomitant]
     Active Substance: ELETRIPTAN
  19. LAMOTRIGINE. [Concomitant]
     Active Substance: LAMOTRIGINE
  20. METOPROLOL. [Concomitant]
     Active Substance: METOPROLOL
  21. PROTONIX [Concomitant]
     Active Substance: PANTOPRAZOLE SODIUM

REACTIONS (2)
  - Urticaria [Recovering/Resolving]
  - Pruritus [Not Recovered/Not Resolved]

NARRATIVE: CASE EVENT DATE: 20190321
